FAERS Safety Report 9765094 (Version 1)
Quarter: 2013Q4

REPORT INFORMATION
  Report Type: Spontaneous
  Country: US (occurrence: None)
  Receive Date: 20131216
  Receipt Date: 20131216
  Transmission Date: 20140711
  Serious: Yes (Hospitalization, Disabling, Other)
  Sender: FDA-Public Use
  Company Number: None

PATIENT
  Age: 24 Year
  Sex: Female
  Weight: 94.8 kg

DRUGS (1)
  1. BETHEL 30 [Suspect]
     Indication: WEIGHT LOSS DIET
     Dosage: 1 PILL DAILY
     Route: 048
     Dates: start: 20120906, end: 20130509

REACTIONS (1)
  - Hypertension [None]
